FAERS Safety Report 14269569 (Version 3)
Quarter: 2019Q1

REPORT INFORMATION
  Report Type: Spontaneous
  Country: US (occurrence: US)
  Receive Date: 20171211
  Receipt Date: 20190116
  Transmission Date: 20190417
  Serious: Yes (Hospitalization, Disabling, Other)
  Sender: FDA-Public Use
  Company Number: US-OTSUKA-2017_017934

PATIENT
  Sex: Female

DRUGS (5)
  1. ABILIFY [Suspect]
     Active Substance: ARIPIPRAZOLE
     Indication: SUICIDAL IDEATION
  2. ABILIFY [Suspect]
     Active Substance: ARIPIPRAZOLE
     Indication: BIPOLAR DISORDER
     Dosage: 15 MG, QD
     Route: 065
     Dates: start: 2006
  3. ABILIFY [Suspect]
     Active Substance: ARIPIPRAZOLE
     Indication: PSYCHOTIC DISORDER
  4. ABILIFY [Suspect]
     Active Substance: ARIPIPRAZOLE
     Indication: MAJOR DEPRESSION
     Dosage: 20 MG, QD
     Route: 065
     Dates: end: 2014
  5. ABILIFY [Suspect]
     Active Substance: ARIPIPRAZOLE
     Indication: ANXIETY

REACTIONS (21)
  - Suicide attempt [Recovered/Resolved]
  - Gambling disorder [Recovered/Resolved]
  - Compulsive shopping [Recovered/Resolved]
  - Anxiety [Unknown]
  - Emotional distress [Unknown]
  - Disability [Unknown]
  - Obsessive-compulsive disorder [Recovered/Resolved]
  - Suicidal ideation [Recovered/Resolved]
  - Eating disorder [Recovered/Resolved]
  - Mental disorder [Unknown]
  - Impulsive behaviour [Recovered/Resolved]
  - Weight increased [Unknown]
  - Injury [Unknown]
  - Homeless [Unknown]
  - Product use in unapproved indication [Unknown]
  - Psychosexual disorder [Recovered/Resolved]
  - Compulsive hoarding [Recovered/Resolved]
  - Pain [Unknown]
  - Bankruptcy [Unknown]
  - Condition aggravated [Unknown]
  - Loss of employment [Unknown]

NARRATIVE: CASE EVENT DATE: 2010
